FAERS Safety Report 6392005-9 (Version None)
Quarter: 2009Q4

REPORT INFORMATION
  Report Type: 
  Country: None (occurrence: None)
  Receive Date: 20091007
  Receipt Date: 20090929
  Transmission Date: 20100525
  Serious: Yes (Death)
  Sender: FDA-Public Use
  Company Number: AU-ROCHE-652494

PATIENT
  Sex: Female
  Weight: 79 kg

DRUGS (20)
  1. KYTRIL [Suspect]
     Indication: NAUSEA
     Route: 042
     Dates: start: 20090721
  2. KYTRIL [Suspect]
     Route: 042
     Dates: start: 20090727
  3. FLUOROURACIL [Suspect]
     Indication: COLON CANCER
     Dosage: DRUG NAME: DBL 5FU IV PUSH FOR 3-5 MINUTES; FORM: INFUSION
     Route: 042
     Dates: start: 20090721
  4. FLUOROURACIL [Suspect]
     Route: 042
     Dates: start: 20090727, end: 20090729
  5. LEUCOVORIN CALCIUM [Suspect]
     Indication: DRUG USE FOR UNKNOWN INDICATION
     Route: 065
     Dates: start: 20090721
  6. OXALIPLATIN [Suspect]
     Indication: COLON CANCER
     Route: 042
     Dates: start: 20090721
  7. OXALIPLATIN [Suspect]
     Route: 042
     Dates: start: 20090727, end: 20090727
  8. DEXAMETHASONE 0.5MG TAB [Suspect]
     Indication: NAUSEA
     Route: 048
     Dates: start: 20090721
  9. DEXAMETHASONE 0.5MG TAB [Suspect]
     Dosage: 8 MG MORNING 2/7, 4 MG NOON 1/7
     Route: 048
     Dates: start: 20090728
  10. METOCLOPRAMIDE [Suspect]
     Indication: NAUSEA
     Route: 048
     Dates: start: 20090721
  11. METOCLOPRAMIDE [Suspect]
     Route: 048
     Dates: start: 20090727
  12. CALCIUM FOLINATE [Concomitant]
     Indication: DRUG USE FOR UNKNOWN INDICATION
     Route: 042
  13. LOPERAMIDE [Concomitant]
     Indication: DIARRHOEA
     Route: 048
     Dates: start: 20090727
  14. ONDANSETRON [Concomitant]
     Indication: NAUSEA
     Route: 048
     Dates: start: 20090728
  15. OXYCONTIN [Concomitant]
     Route: 048
  16. ENDONE [Concomitant]
     Route: 048
  17. NICORETTE [Concomitant]
     Indication: NICOTINE DEPENDENCE
  18. LEVOTHYROXINE SODIUM [Concomitant]
     Route: 048
  19. ACETAMINOPHEN [Concomitant]
     Indication: PAIN
     Route: 048
  20. IBRUFEN [Concomitant]
     Indication: PAIN
     Route: 048

REACTIONS (9)
  - ARRHYTHMIA [None]
  - CARDIAC ARREST [None]
  - CEREBRAL HAEMATOMA [None]
  - DYSTONIA [None]
  - HYPOXIC ENCEPHALOPATHY [None]
  - MYOCARDIAL INFARCTION [None]
  - NO THERAPEUTIC RESPONSE [None]
  - RIB FRACTURE [None]
  - VENTRICULAR FIBRILLATION [None]
